FAERS Safety Report 9455999 (Version 1)
Quarter: 2013Q3

REPORT INFORMATION
  Report Type: Report from Study
  Country: US (occurrence: US)
  Receive Date: 20130813
  Receipt Date: 20130813
  Transmission Date: 20140515
  Serious: Yes (Hospitalization)
  Sender: FDA-Public Use
  Company Number: US-PFIZER INC-2013229504

PATIENT
  Age: 43 Year
  Sex: Male

DRUGS (4)
  1. DOXORUBICIN HCL [Suspect]
     Indication: APPENDIX CANCER
     Dosage: UNK
     Route: 033
  2. MITOMYCIN [Suspect]
     Indication: APPENDIX CANCER
     Dosage: UNK
     Route: 033
  3. FLUOROURACIL [Suspect]
     Indication: APPENDIX CANCER
     Route: 042
  4. LEUCOVORIN [Suspect]
     Indication: APPENDIX CANCER

REACTIONS (1)
  - Gastric perforation [Recovered/Resolved]
